FAERS Safety Report 15283112 (Version 1)
Quarter: 2018Q3

REPORT INFORMATION
  Report Type: Spontaneous
  Country: DE (occurrence: DE)
  Receive Date: 20180816
  Receipt Date: 20180816
  Transmission Date: 20181010
  Serious: Yes (Life-Threatening, Other)
  Sender: FDA-Public Use
  Company Number: DE-DRREDDYS-GER/GER/18/0103147

PATIENT
  Sex: Male

DRUGS (7)
  1. VENLAFAXINE [Suspect]
     Active Substance: VENLAFAXINE HYDROCHLORIDE
     Indication: PRODUCT USED FOR UNKNOWN INDICATION
     Route: 048
     Dates: start: 20171128, end: 20171213
  2. CHLORPROTHIXEN [Concomitant]
     Active Substance: CHLORPROTHIXENE HYDROCHLORIDE
     Indication: PRODUCT USED FOR UNKNOWN INDICATION
     Route: 048
     Dates: end: 20171213
  3. AMITRIPTYLIN [Suspect]
     Active Substance: AMITRIPTYLINE
     Dates: end: 20171213
  4. LORAZEPAM. [Concomitant]
     Active Substance: LORAZEPAM
     Dates: start: 20171128, end: 20171213
  5. LORAZEPAM. [Concomitant]
     Active Substance: LORAZEPAM
     Indication: PRODUCT USED FOR UNKNOWN INDICATION
     Dates: start: 20171216
  6. AMITRIPTYLIN [Suspect]
     Active Substance: AMITRIPTYLINE
     Indication: PRODUCT USED FOR UNKNOWN INDICATION
     Route: 048
     Dates: start: 20171215
  7. CHLORPROTHIXEN [Concomitant]
     Active Substance: CHLORPROTHIXENE HYDROCHLORIDE
     Dates: end: 20171216

REACTIONS (1)
  - Suicide attempt [Recovered/Resolved]

NARRATIVE: CASE EVENT DATE: 20171213
